FAERS Safety Report 7091104-6 (Version None)
Quarter: 2010Q4

REPORT INFORMATION
  Report Type: 
  Country: None (occurrence: None)
  Receive Date: 20101105
  Receipt Date: 20101105
  Transmission Date: 20110411
  Serious: Yes (Death, Hospitalization)
  Sender: FDA-Public Use
  Company Number: None

PATIENT
  Sex: Female
  Weight: 62.18 kg

DRUGS (3)
  1. ERBITUX [Suspect]
     Dosage: 2103 MG
     Dates: end: 20101018
  2. TAXOL [Suspect]
     Dates: end: 20100706
  3. CARBOPLATIN [Suspect]
     Dates: end: 20100706

REACTIONS (7)
  - ASTHENIA [None]
  - COUGH [None]
  - DYSPNOEA [None]
  - FATIGUE [None]
  - PNEUMONIA [None]
  - PNEUMONITIS [None]
  - RESPIRATORY DISTRESS [None]
